FAERS Safety Report 20602165 (Version 1)
Quarter: 2022Q1

REPORT INFORMATION
  Report Type: Spontaneous
  Country: DE (occurrence: DE)
  Receive Date: 20220316
  Receipt Date: 20220316
  Transmission Date: 20220423
  Serious: Yes (Other)
  Sender: FDA-Public Use
  Company Number: None

PATIENT
  Age: 33 Year
  Sex: Female
  Weight: 53 kg

DRUGS (1)
  1. METOPROLOL [Suspect]
     Active Substance: METOPROLOL
     Indication: Migraine prophylaxis
     Dosage: 47.5 MILLIGRAM, BID (47,5 MG 2XDAILY)
     Route: 048
     Dates: start: 20211101

REACTIONS (2)
  - Hypnagogic hallucination [Unknown]
  - Nightmare [Unknown]

NARRATIVE: CASE EVENT DATE: 20220108
